FAERS Safety Report 5302087-0 (Version None)
Quarter: 2007Q2

REPORT INFORMATION
  Report Type: 
  Country: None (occurrence: None)
  Receive Date: 20070419
  Receipt Date: 20070412
  Transmission Date: 20071010
  Serious: Yes (Hospitalization)
  Sender: FDA-Public Use
  Company Number: FR-GLAXOSMITHKLINE-B0457340A

PATIENT
  Age: 35 Year
  Sex: Female

DRUGS (6)
  1. TELZIR [Suspect]
     Indication: HIV INFECTION
     Dosage: 1400MG PER DAY
     Route: 048
     Dates: end: 20070101
  2. KIVEXA [Suspect]
     Indication: HIV INFECTION
     Dosage: 1UNIT PER DAY
     Route: 048
     Dates: end: 20070101
  3. NORVIR [Suspect]
     Indication: HIV INFECTION
     Dosage: 100MG PER DAY
     Route: 048
     Dates: end: 20070101
  4. BACTRIM [Suspect]
     Route: 048
     Dates: end: 20061212
  5. ADVIL [Suspect]
     Route: 048
     Dates: end: 20061212
  6. TRIFLUCAN [Suspect]
     Route: 048
     Dates: end: 20061212

REACTIONS (13)
  - BLOOD PRESSURE DECREASED [None]
  - CHEILITIS [None]
  - CHEST DISCOMFORT [None]
  - CONJUNCTIVITIS [None]
  - DERMATITIS EXFOLIATIVE [None]
  - ERYTHEMA [None]
  - ERYTHEMA MULTIFORME [None]
  - GASTROINTESTINAL DISORDER [None]
  - HYPERKERATOSIS [None]
  - PYREXIA [None]
  - SKIN EXFOLIATION [None]
  - TOXIC SKIN ERUPTION [None]
  - VULVITIS [None]
